FAERS Safety Report 8391920-4 (Version None)
Quarter: 2012Q2

REPORT INFORMATION
  Report Type: 
  Country: None (occurrence: None)
  Receive Date: 20120529
  Receipt Date: 20120423
  Transmission Date: 20120825
  Serious: Yes (Hospitalization)
  Sender: FDA-Public Use
  Company Number: JP-GLAXOSMITHKLINE-B0798312A

PATIENT
  Sex: Female

DRUGS (7)
  1. LEXOTAN [Concomitant]
     Indication: MOOD SWINGS
     Dosage: 2MG PER DAY
     Route: 048
     Dates: start: 20120315
  2. PRIMPERAN TAB [Concomitant]
     Route: 065
  3. CHINESE MEDICINE [Concomitant]
     Indication: MOOD SWINGS
     Dosage: 7.5G PER DAY
     Route: 048
     Dates: start: 20120316, end: 20120418
  4. REMERON [Concomitant]
     Indication: MOOD SWINGS
     Dosage: .5MG PER DAY
     Route: 048
     Dates: start: 20111108, end: 20120329
  5. LAMICTAL [Suspect]
     Indication: MOOD SWINGS
     Dosage: 25MG ALTERNATE DAYS
     Route: 048
     Dates: start: 20120330, end: 20120414
  6. CALMDOWN [Concomitant]
     Indication: MOOD SWINGS
     Dosage: 1.2MG PER DAY
     Route: 048
     Dates: start: 20111221
  7. LANSOPRAZOLE [Concomitant]
     Route: 048

REACTIONS (5)
  - FEBRILE NEUTROPENIA [None]
  - MALAISE [None]
  - HYPERTHERMIA [None]
  - WHITE BLOOD CELL COUNT DECREASED [None]
  - PYREXIA [None]
